FAERS Safety Report 23081270 (Version 1)
Quarter: 2023Q4

REPORT INFORMATION
  Report Type: Spontaneous
  Country: US (occurrence: US)
  Receive Date: 20231018
  Receipt Date: 20231018
  Transmission Date: 20240109
  Serious: No
  Sender: FDA-Public Use
  Company Number: US-JNJFOC-20231036158

PATIENT
  Age: 64 Year
  Sex: Male
  Weight: 73.9 kg

DRUGS (12)
  1. XARELTO [Suspect]
     Active Substance: RIVAROXABAN
     Indication: Product used for unknown indication
     Route: 048
  2. REMODULIN [Suspect]
     Active Substance: TREPROSTINIL
     Indication: Pulmonary arterial hypertension
     Dosage: 2.8 ML PER CASSETTE AT THE INFUSION RATE OF 32 MCL PER HOUR
     Route: 058
     Dates: start: 20230110
  3. REMODULIN [Suspect]
     Active Substance: TREPROSTINIL
     Route: 058
     Dates: start: 2023
  4. SODIUM [Concomitant]
     Active Substance: SODIUM
  5. DIGOXIN [Concomitant]
     Active Substance: DIGOXIN
  6. SPIRONOLACTONE [Concomitant]
     Active Substance: SPIRONOLACTONE
  7. AMBRISENTAN [Concomitant]
     Active Substance: AMBRISENTAN
  8. LORATADINE [Concomitant]
     Active Substance: LORATADINE
  9. ALLOPURINOL [Concomitant]
     Active Substance: ALLOPURINOL
  10. PANTOPRAZOLE SODIUM [Concomitant]
     Active Substance: PANTOPRAZOLE SODIUM
  11. LASIX [Concomitant]
     Active Substance: FUROSEMIDE
  12. ADEMPAS [Concomitant]
     Active Substance: RIOCIGUAT

REACTIONS (4)
  - Epistaxis [Unknown]
  - Confusional state [Unknown]
  - Nervousness [Unknown]
  - Feeling abnormal [Unknown]
